FAERS Safety Report 6543584-X (Version None)
Quarter: 2010Q1

REPORT INFORMATION
  Report Type: 
  Country: None (occurrence: None)
  Receive Date: 20100115
  Receipt Date: 20100105
  Transmission Date: 20100710
  Serious: Yes (Hospitalization)
  Sender: FDA-Public Use
  Company Number: 2009SP021070

PATIENT
  Age: 27 Year
  Sex: Female
  Weight: 86.637 kg

DRUGS (3)
  1. NUVARING [Suspect]
     Indication: CONTRACEPTION
     Dates: start: 20050501, end: 20060501
  2. NEURONTIN [Concomitant]
  3. AMITRIPTYLINE HCL [Concomitant]

REACTIONS (3)
  - ARTERIAL INSUFFICIENCY [None]
  - DEEP VEIN THROMBOSIS [None]
  - EMBOLISM [None]
